FAERS Safety Report 15440310 (Version 10)
Quarter: 2019Q1

REPORT INFORMATION
  Report Type: Report from Study
  Country: US (occurrence: US)
  Receive Date: 20180928
  Receipt Date: 20190214
  Transmission Date: 20190417
  Serious: Yes (Life-Threatening, Hospitalization, Other)
  Sender: FDA-Public Use
  Company Number: US-MALLINCKRODT-T201803483

PATIENT
  Age: 58 Year
  Sex: Female

DRUGS (13)
  1. NEURONTIN [Concomitant]
     Active Substance: GABAPENTIN
     Indication: PRODUCT USED FOR UNKNOWN INDICATION
     Dosage: UNK
     Route: 065
  2. REPOSITORY CORTICOTROPIN INJECTION [Suspect]
     Active Substance: CORTICOTROPIN
     Dosage: 80 UNITS/1 ML, 2 TIMES PER WEEK (THURSDAY AND SUNDAY)
     Route: 058
     Dates: end: 20181220
  3. REPOSITORY CORTICOTROPIN INJECTION [Suspect]
     Active Substance: CORTICOTROPIN
     Indication: SYSTEMIC LUPUS ERYTHEMATOSUS
     Dosage: 80UNIT, BI WEEKLY
     Route: 058
     Dates: start: 20180807, end: 201808
  4. LASIX [Suspect]
     Active Substance: FUROSEMIDE
     Indication: PLEURAL EFFUSION
     Dosage: 80 MG, UNK
     Route: 065
  5. PHENTERMINE. [Concomitant]
     Active Substance: PHENTERMINE
     Indication: PRODUCT USED FOR UNKNOWN INDICATION
     Dosage: UNK
     Route: 065
  6. REPOSITORY CORTICOTROPIN INJECTION [Suspect]
     Active Substance: CORTICOTROPIN
     Dosage: 80 UNITS/1 ML, 2 TIMES PER WEEK THURSDAY AND SUNDAY
     Route: 058
     Dates: start: 2018, end: 2018
  7. REPOSITORY CORTICOTROPIN INJECTION [Suspect]
     Active Substance: CORTICOTROPIN
     Dosage: 80 UNITS/1 ML, 2 TIMES PER WEEK (THURSDAY AND SUNDAY)
     Route: 058
     Dates: start: 2018, end: 20181028
  8. OXYCODONE [Concomitant]
     Active Substance: OXYCODONE
     Indication: PRODUCT USED FOR UNKNOWN INDICATION
     Dosage: UNK
     Route: 065
  9. IRON [Concomitant]
     Active Substance: IRON
     Indication: PRODUCT USED FOR UNKNOWN INDICATION
     Dosage: UNK
     Route: 065
  10. REPOSITORY CORTICOTROPIN INJECTION [Suspect]
     Active Substance: CORTICOTROPIN
     Dosage: 80 UNITS/1 ML, 2 TIMES PER WEEK (THURSDAY AND SUNDAY)
     Route: 058
     Dates: start: 20180808, end: 2018
  11. PREDNISONE. [Concomitant]
     Active Substance: PREDNISONE
     Indication: PRODUCT USED FOR UNKNOWN INDICATION
     Dosage: UNK
     Route: 065
  12. POTASSIUM [Concomitant]
     Active Substance: POTASSIUM
     Indication: PRODUCT USED FOR UNKNOWN INDICATION
     Dosage: UNK
     Route: 065
  13. REPOSITORY CORTICOTROPIN INJECTION [Suspect]
     Active Substance: CORTICOTROPIN
     Dosage: MORE THAN 80 UNITS
     Route: 065
     Dates: start: 2018, end: 2018

REACTIONS (40)
  - Syncope [Unknown]
  - Injection site pruritus [Unknown]
  - Infection [Not Recovered/Not Resolved]
  - Catheter site pain [Unknown]
  - Apparent death [Unknown]
  - Injection site mass [Unknown]
  - Weight increased [Not Recovered/Not Resolved]
  - Headache [Unknown]
  - Systemic lupus erythematosus [Not Recovered/Not Resolved]
  - Dyspnoea [Not Recovered/Not Resolved]
  - Pollakiuria [Unknown]
  - Gait disturbance [Unknown]
  - Injection site pain [Unknown]
  - Treatment noncompliance [Unknown]
  - Thyroid disorder [Not Recovered/Not Resolved]
  - Generalised oedema [Not Recovered/Not Resolved]
  - Catheter site haemorrhage [Unknown]
  - Haematoma [Not Recovered/Not Resolved]
  - Blood potassium decreased [Unknown]
  - Injection site swelling [Unknown]
  - Incorrect dose administered [Unknown]
  - Ejection fraction decreased [Not Recovered/Not Resolved]
  - Pericardial effusion [Not Recovered/Not Resolved]
  - Blood pressure abnormal [Not Recovered/Not Resolved]
  - Night sweats [Not Recovered/Not Resolved]
  - Confusional state [Unknown]
  - Increased appetite [Unknown]
  - Tearfulness [Unknown]
  - Catheter site bruise [Recovering/Resolving]
  - Pleural effusion [Unknown]
  - Spinal disorder [Not Recovered/Not Resolved]
  - Weight decreased [Unknown]
  - Anxiety [Unknown]
  - Fluid overload [Not Recovered/Not Resolved]
  - Cushingoid [Not Recovered/Not Resolved]
  - Muscle spasms [Not Recovered/Not Resolved]
  - Vision blurred [Unknown]
  - Injection site erythema [Unknown]
  - Emotional disorder [Unknown]
  - Hyperhidrosis [Unknown]

NARRATIVE: CASE EVENT DATE: 2018
